FAERS Safety Report 4895099-2 (Version None)
Quarter: 2006Q1

REPORT INFORMATION
  Report Type: 
  Country: None (occurrence: None)
  Receive Date: 20060126
  Receipt Date: 20060126
  Transmission Date: 20060701
  Serious: Yes (Hospitalization)
  Sender: FDA-Public Use
  Company Number: None

PATIENT
  Sex: Female

DRUGS (6)
  1. CYTARABINE [Suspect]
     Dosage: SEE IMAGE
     Route: 037
     Dates: start: 20051220, end: 20051220
  2. DAUNORUBICIN [Suspect]
     Dosage: SEE IMAGE
     Dates: start: 20051222, end: 20060113
  3. DEXAMETHASONE TAB [Suspect]
     Dosage: SEE IMAGE
     Dates: start: 20051222, end: 20060104
  4. METHOTREXATE [Suspect]
     Dosage: SEE IMAGE
     Route: 037
     Dates: start: 20051229, end: 20060119
  5. PEG L-ASPARAGINASE (K-H) [Suspect]
     Dosage: SEE IMAGE
     Dates: start: 20051227, end: 20051227
  6. VINCRISTINE SULFATE [Suspect]
     Dosage: SEE IMAGE
     Dates: start: 20051222, end: 20060113

REACTIONS (8)
  - BODY TEMPERATURE INCREASED [None]
  - CONVULSION [None]
  - HYPOTENSION [None]
  - HYPOVENTILATION [None]
  - INJURY [None]
  - INTUBATION COMPLICATION [None]
  - PUPIL FIXED [None]
  - WHITE BLOOD CELL COUNT DECREASED [None]
